FAERS Safety Report 10130346 (Version 2)
Quarter: 2014Q2

REPORT INFORMATION
  Report Type: Report from Study
  Country: CA (occurrence: CA)
  Receive Date: 20140428
  Receipt Date: 20140507
  Transmission Date: 20141212
  Serious: Yes (Other)
  Sender: FDA-Public Use
  Company Number: CA-JNJFOC-20140415592

PATIENT
  Age: 48 Year
  Sex: Female
  Weight: 65 kg

DRUGS (11)
  1. REMICADE [Suspect]
     Indication: HIDRADENITIS
     Route: 042
     Dates: start: 20140422
  2. REMICADE [Suspect]
     Indication: HIDRADENITIS
     Route: 042
     Dates: start: 20140408
  3. REMICADE [Suspect]
     Indication: HIDRADENITIS
     Route: 042
     Dates: start: 2009
  4. TYLENOL [Concomitant]
     Indication: PREMEDICATION
     Route: 048
  5. BENADRYL [Concomitant]
     Indication: PREMEDICATION
     Route: 048
  6. SOLU CORTEF [Concomitant]
     Indication: PREMEDICATION
     Route: 042
  7. NORMAL SALINE [Concomitant]
     Indication: PREMEDICATION
     Dosage: 150 CC
     Route: 065
  8. LANTUS [Concomitant]
     Indication: TYPE 2 DIABETES MELLITUS
     Dosage: 6-10 UNITS / DAY (LONG ACTING INSULIN)
     Route: 065
     Dates: start: 1998
  9. DEMEROL [Concomitant]
     Indication: PAIN
     Dosage: AT BEDTIME
     Route: 065
  10. PREDNISONE [Concomitant]
     Indication: PREMEDICATION
     Route: 065
  11. REACTINE [Concomitant]
     Indication: PREMEDICATION
     Route: 065

REACTIONS (11)
  - Infusion related reaction [Recovered/Resolved]
  - Feeling hot [Recovered/Resolved]
  - Palmar erythema [Recovered/Resolved]
  - Dyspnoea [Recovered/Resolved]
  - Flushing [Recovered/Resolved]
  - Feeling hot [Recovered/Resolved]
  - Headache [Recovered/Resolved]
  - Palpitations [Recovered/Resolved]
  - Chest discomfort [Recovered/Resolved]
  - Throat irritation [Recovered/Resolved]
  - Off label use [Unknown]
